APPROVED DRUG PRODUCT: OFORTA
Active Ingredient: FLUDARABINE PHOSPHATE
Strength: 10MG
Dosage Form/Route: TABLET;ORAL
Application: N022273 | Product #001
Applicant: SANOFI AVENTIS US LLC
Approved: Dec 18, 2008 | RLD: No | RS: No | Type: DISCN